FAERS Safety Report 5024642-8 (Version None)
Quarter: 2006Q2

REPORT INFORMATION
  Report Type: 
  Country: None (occurrence: None)
  Receive Date: 20060613
  Receipt Date: 20060428
  Transmission Date: 20061013
  Serious: Yes (Disabling)
  Sender: FDA-Public Use
  Company Number: FR-AMGEN-UK178086

PATIENT
  Sex: Female
  Weight: 53.5 kg

DRUGS (19)
  1. ARANESP [Suspect]
     Indication: DIALYSIS
     Route: 042
     Dates: start: 20050720, end: 20060428
  2. TIENAM [Suspect]
     Route: 042
     Dates: start: 20060112, end: 20060426
  3. BACTRIM [Suspect]
     Route: 048
     Dates: start: 20060112, end: 20060129
  4. VENOFER [Concomitant]
     Route: 042
     Dates: start: 20000101
  5. CALCIUM FOLINATE [Concomitant]
     Route: 042
     Dates: start: 20050101
  6. TPN [Concomitant]
     Route: 042
     Dates: start: 20050101
  7. ACETAMINOPHEN [Concomitant]
     Route: 042
     Dates: start: 20050101
  8. L-CARNITINE [Concomitant]
     Route: 042
     Dates: start: 20050101
  9. BUFLOMEDIL [Concomitant]
     Route: 065
     Dates: start: 20050101
  10. INSULIN LISPRO [Concomitant]
     Route: 058
  11. INSULATARD NPH HUMAN [Concomitant]
     Route: 058
  12. FLUINDIONE [Concomitant]
     Route: 048
     Dates: start: 20010101
  13. SEVELAMER HCL [Concomitant]
     Route: 048
     Dates: start: 20030101
  14. BROMAZEPAM [Concomitant]
     Route: 048
     Dates: start: 20000101
  15. DEXTROPROPOXYPHENE NAPSILATE W/ ACETOMINOPHEN [Concomitant]
     Route: 048
     Dates: start: 20060112
  16. AMIODARONE [Concomitant]
     Route: 048
     Dates: start: 20000101
  17. CALCIUM CARBONATE [Concomitant]
     Route: 048
     Dates: start: 20010101
  18. TRINITRIN [Concomitant]
     Route: 048
     Dates: start: 20000101
  19. FLUVASTATIN [Concomitant]
     Route: 048
     Dates: start: 20020101

REACTIONS (3)
  - ANAEMIA [None]
  - APLASIA PURE RED CELL [None]
  - RETICULOCYTE COUNT DECREASED [None]
